FAERS Safety Report 22028435 (Version 2)
Quarter: 2023Q1

REPORT INFORMATION
  Report Type: Report from Study
  Country: US (occurrence: US)
  Receive Date: 20230223
  Receipt Date: 20230307
  Transmission Date: 20230418
  Serious: Yes (Other)
  Sender: FDA-Public Use
  Company Number: US-INSMED, INC.-2023-00442-US

PATIENT
  Age: 52 Year
  Sex: Female

DRUGS (1)
  1. ARIKAYCE [Suspect]
     Active Substance: AMIKACIN
     Indication: Mycobacterial infection
     Dosage: 590 MILLIGRAM, QD
     Route: 055
     Dates: start: 20230202, end: 20230210

REACTIONS (9)
  - Palpitations [Unknown]
  - Oxygen saturation decreased [Unknown]
  - Pain [Unknown]
  - Aphonia [Recovering/Resolving]
  - Pyrexia [Unknown]
  - Dysphonia [Recovering/Resolving]
  - Dizziness [Unknown]
  - Cough [Unknown]
  - Adverse drug reaction [Unknown]

NARRATIVE: CASE EVENT DATE: 20230201
